FAERS Safety Report 8808896 (Version 1)
Quarter: 2012Q4

REPORT INFORMATION
  Report Type: Spontaneous
  Country: US (occurrence: None)
  Receive Date: 20120921
  Receipt Date: 20120921
  Transmission Date: 20130627
  Serious: Yes (Death, Other)
  Sender: FDA-Public Use
  Company Number: None

PATIENT
  Age: 80 Year
  Sex: Female

DRUGS (2)
  1. HALDOL [Suspect]
  2. ATIVAN [Suspect]

REACTIONS (2)
  - Stupor [None]
  - Pupil fixed [None]
